FAERS Safety Report 20735864 (Version 1)
Quarter: 2022Q2

REPORT INFORMATION
  Report Type: Spontaneous
  Country: US (occurrence: US)
  Receive Date: 20220421
  Receipt Date: 20220421
  Transmission Date: 20220721
  Serious: No
  Sender: FDA-Public Use
  Company Number: US-TEVA-2022-US-2020205

PATIENT
  Age: 75 Year
  Sex: Female

DRUGS (10)
  1. ESTRADIOL [Suspect]
     Active Substance: ESTRADIOL
     Dosage: 2 WEEKS
     Route: 067
  2. HYDROCHLOROTHIAZIDE\LOSARTAN [Concomitant]
     Active Substance: HYDROCHLOROTHIAZIDE\LOSARTAN
     Dosage: 3-4 YEARS, 100-12MG
  3. AMLODIPINE BESYLATE [Concomitant]
     Active Substance: AMLODIPINE BESYLATE
     Dosage: 4-5YEARS,
  4. LEVOTHYROXINE [Concomitant]
     Active Substance: LEVOTHYROXINE
     Dosage: 30 YEARS
  5. SULFAMETHOXAZOLE\TRIMETHOPRIM [Concomitant]
     Active Substance: SULFAMETHOXAZOLE\TRIMETHOPRIM
     Indication: Urinary tract infection
     Dosage: 4/8
     Dates: start: 20190422
  6. ALEVE [Concomitant]
     Active Substance: NAPROXEN SODIUM
     Dosage: 3YEARS
  7. GARLIC [Concomitant]
     Active Substance: GARLIC
  8. FISH OIL [Concomitant]
     Active Substance: FISH OIL
  9. VITAMIN B12 [Concomitant]
     Active Substance: CYANOCOBALAMIN
  10. ZINC [Concomitant]
     Active Substance: ZINC

REACTIONS (7)
  - Stress [Recovering/Resolving]
  - Affect lability [Recovering/Resolving]
  - Crying [Recovering/Resolving]
  - Irritability [Recovering/Resolving]
  - Feeling abnormal [Recovering/Resolving]
  - Cardiac murmur [Unknown]
  - Drug ineffective [Unknown]

NARRATIVE: CASE EVENT DATE: 20190401
